FAERS Safety Report 21653860 (Version 2)
Quarter: 2022Q4

REPORT INFORMATION
  Report Type: Spontaneous
  Country: US (occurrence: US)
  Receive Date: 20221129
  Receipt Date: 20221213
  Transmission Date: 20230113
  Serious: Yes (Life-Threatening, Hospitalization, Other)
  Sender: FDA-Public Use
  Company Number: US-MLMSERVICE-20221109-3909488-1

PATIENT
  Age: 57 Year
  Sex: Male

DRUGS (3)
  1. AMLODIPINE BESYLATE [Suspect]
     Active Substance: AMLODIPINE BESYLATE
     Indication: Suicide attempt
     Dosage: 20 DOSAGE FORM, 1 TOTAL
     Route: 048
  2. BENAZEPRIL [Suspect]
     Active Substance: BENAZEPRIL HYDROCHLORIDE
     Indication: Suicide attempt
     Dosage: 20 DOSAGE FORM (1 TOTAL)
     Route: 048
  3. GABAPENTIN [Concomitant]
     Active Substance: GABAPENTIN
     Indication: Product used for unknown indication
     Dosage: 10 DOSAGE FORM, 1 TOTAL
     Route: 065

REACTIONS (14)
  - Lactic acidosis [Recovering/Resolving]
  - Renal impairment [Recovering/Resolving]
  - Electrolyte imbalance [Recovering/Resolving]
  - Cardiac arrest [Recovering/Resolving]
  - Toxicity to various agents [Recovering/Resolving]
  - Intentional overdose [Recovering/Resolving]
  - Shock [Recovering/Resolving]
  - Haemodynamic instability [Recovering/Resolving]
  - Oropharyngeal oedema [Unknown]
  - Respiratory acidosis [Recovering/Resolving]
  - Vasoplegia syndrome [Recovering/Resolving]
  - Distributive shock [Recovering/Resolving]
  - Tongue oedema [Unknown]
  - Hypervolaemia [Recovering/Resolving]
